FAERS Safety Report 7580069-6 (Version None)
Quarter: 2011Q2

REPORT INFORMATION
  Report Type: 
  Country: None (occurrence: None)
  Receive Date: 20110629
  Receipt Date: 20110624
  Transmission Date: 20111010
  Serious: Yes (Life-Threatening, Hospitalization)
  Sender: FDA-Public Use
  Company Number: US-NOVOPROD-330095

PATIENT
  Age: 52 Year
  Sex: Female
  Weight: 89.8 kg

DRUGS (5)
  1. INSULATARD FLEXPEN HM(GE) [Suspect]
     Indication: TYPE 1 DIABETES MELLITUS
     Dosage: 18 U, QD (MAIN TRIAL)
     Route: 058
     Dates: start: 20100923, end: 20100929
  2. NOVORAPID FLEXPEN [Suspect]
     Dosage: 32 U, QD
     Route: 058
     Dates: start: 20100929
  3. LANTUS [Suspect]
     Indication: TYPE 1 DIABETES MELLITUS
     Dosage: 22 U, QD (MAIN TRIAL)
     Route: 058
     Dates: start: 20090924, end: 20100922
  4. LANTUS [Suspect]
     Dosage: 28 U, QD
     Route: 058
     Dates: start: 20100929
  5. NOVORAPID FLEXPEN [Suspect]
     Indication: TYPE 1 DIABETES MELLITUS
     Dosage: 32 U, QD (MAIN TRIAL)
     Route: 058
     Dates: start: 20090924, end: 20100929

REACTIONS (4)
  - LUNG CANCER METASTATIC [None]
  - HEPATIC CANCER METASTATIC [None]
  - GALLBLADDER CANCER [None]
  - GALLBLADDER CANCER METASTATIC [None]
